FAERS Safety Report 4269331-2 (Version None)
Quarter: 2004Q1

REPORT INFORMATION
  Report Type: 
  Country: None (occurrence: None)
  Receive Date: 20040109
  Receipt Date: 20031226
  Transmission Date: 20041129
  Serious: Yes (Hospitalization)
  Sender: FDA-Public Use
  Company Number: RENA-10835

PATIENT
  Age: 53 Year
  Sex: Male
  Weight: 62 kg

DRUGS (9)
  1. RENAGEL [Suspect]
     Indication: HYPERPHOSPHATAEMIA
     Dosage: 3 G DAILY PO
     Route: 048
     Dates: start: 20030723, end: 20031121
  2. CALCIUM CARBONATE [Concomitant]
  3. MARZULENE S [Concomitant]
  4. REBAMIPIDE [Concomitant]
  5. FLOPROPIONE [Concomitant]
  6. LANSOPRAZOLE [Concomitant]
  7. NIFEDIPINE [Concomitant]
  8. MAXACALCITOL [Concomitant]
  9. ALOSENN (SENNA LEAF/POD) [Concomitant]

REACTIONS (5)
  - ACUTE ABDOMEN [None]
  - DIALYSIS [None]
  - FLATULENCE [None]
  - INSOMNIA [None]
  - NAUSEA [None]
